FAERS Safety Report 17860226 (Version 1)
Quarter: 2020Q2

REPORT INFORMATION
  Report Type: Spontaneous
  Country: PA (occurrence: PA)
  Receive Date: 20200604
  Receipt Date: 20200604
  Transmission Date: 20200714
  Serious: Yes (Other)
  Sender: FDA-Public Use
  Company Number: PA-ROCHE-2613403

PATIENT
  Sex: Male

DRUGS (15)
  1. MABTHERA [Suspect]
     Active Substance: RITUXIMAB
     Dosage: 4 CYCLES
     Route: 065
     Dates: end: 20190520
  2. VINCRISTINE [Concomitant]
     Active Substance: VINCRISTINE
     Indication: NON-HODGKIN^S LYMPHOMA
     Dosage: 5 CYCLES
     Route: 065
     Dates: start: 20170918, end: 20180122
  3. ETOPOSIDE. [Concomitant]
     Active Substance: ETOPOSIDE
     Indication: NON-HODGKIN^S LYMPHOMA
     Dosage: 3 CYCLES
     Route: 065
     Dates: start: 20180416, end: 20180514
  4. METHYLPREDNISOLONE. [Concomitant]
     Active Substance: METHYLPREDNISOLONE
     Indication: NON-HODGKIN^S LYMPHOMA
     Dosage: 3 CYCLES
     Route: 065
     Dates: start: 20180416, end: 20180514
  5. OXALIPLATIN. [Concomitant]
     Active Substance: OXALIPLATIN
     Indication: NON-HODGKIN^S LYMPHOMA
     Dosage: 4 CYCLES
     Route: 065
     Dates: start: 20190520
  6. GEMCITABINE. [Concomitant]
     Active Substance: GEMCITABINE
     Indication: NON-HODGKIN^S LYMPHOMA
     Dosage: 4 CYCLES
     Route: 065
     Dates: end: 20190520
  7. LENALIDOMIDE [Concomitant]
     Active Substance: LENALIDOMIDE
     Indication: NON-HODGKIN^S LYMPHOMA
     Route: 065
     Dates: end: 202005
  8. CYCLOPHOSPHAMIDE. [Concomitant]
     Active Substance: CYCLOPHOSPHAMIDE
     Indication: NON-HODGKIN^S LYMPHOMA
     Dosage: 5 CYCLES
     Route: 065
     Dates: start: 20170918, end: 20180122
  9. CYTARABINE. [Concomitant]
     Active Substance: CYTARABINE
     Indication: NON-HODGKIN^S LYMPHOMA
     Dosage: 3 CYCLES
     Route: 065
     Dates: start: 20180416, end: 20180416
  10. PLATINOL [Concomitant]
     Active Substance: CISPLATIN
     Indication: NON-HODGKIN^S LYMPHOMA
     Dosage: 3 CYCLES
     Route: 065
     Dates: start: 20180416, end: 20180514
  11. DOXORUBICIN [Concomitant]
     Active Substance: DOXORUBICIN
     Indication: NON-HODGKIN^S LYMPHOMA
     Dosage: 5 CYCLES
     Route: 065
     Dates: start: 20170918, end: 20180122
  12. MABTHERA [Suspect]
     Active Substance: RITUXIMAB
     Indication: NON-HODGKIN^S LYMPHOMA
     Dosage: 5 CYCLES
     Route: 065
     Dates: start: 20170918, end: 20180122
  13. PREDNISONE. [Concomitant]
     Active Substance: PREDNISONE
     Indication: NON-HODGKIN^S LYMPHOMA
     Dosage: 5 CYCLES
     Route: 065
     Dates: start: 20170918, end: 20180122
  14. MABTHERA [Suspect]
     Active Substance: RITUXIMAB
     Indication: DIFFUSE LARGE B-CELL LYMPHOMA
     Dosage: 3 CYCLES
     Route: 065
     Dates: start: 20180416, end: 20180514
  15. MABTHERA [Suspect]
     Active Substance: RITUXIMAB
     Route: 065
     Dates: end: 202005

REACTIONS (2)
  - Sepsis [Unknown]
  - Diffuse large B-cell lymphoma refractory [Unknown]
